FAERS Safety Report 25240582 (Version 1)
Quarter: 2025Q2

REPORT INFORMATION
  Report Type: Spontaneous
  Country: CZ (occurrence: CZ)
  Receive Date: 20250425
  Receipt Date: 20250425
  Transmission Date: 20250717
  Serious: Yes (Other)
  Sender: GILEAD
  Company Number: CZ-GILEAD-2025-0711312

PATIENT
  Age: 50 Year
  Sex: Male

DRUGS (7)
  1. VIREAD [Suspect]
     Active Substance: TENOFOVIR DISOPROXIL FUMARATE
     Indication: HIV infection
     Route: 065
     Dates: start: 201502
  2. VIREAD [Suspect]
     Active Substance: TENOFOVIR DISOPROXIL FUMARATE
     Route: 065
     Dates: start: 202410
  3. DROTAVERINE [Concomitant]
     Active Substance: DROTAVERINE
  4. DOLUTEGRAVIR [Concomitant]
     Active Substance: DOLUTEGRAVIR
  5. RAL [Concomitant]
  6. LAMIVUDINE [Concomitant]
     Active Substance: LAMIVUDINE
  7. RILPIVIRINE [Concomitant]
     Active Substance: RILPIVIRINE

REACTIONS (2)
  - Dilated cardiomyopathy [Unknown]
  - Drug resistance [Unknown]

NARRATIVE: CASE EVENT DATE: 20241001
